FAERS Safety Report 8041887-3 (Version None)
Quarter: 2012Q1

REPORT INFORMATION
  Report Type: 
  Country: None (occurrence: None)
  Receive Date: 20120112
  Receipt Date: 20120112
  Transmission Date: 20120608
  Serious: Yes (Hospitalization)
  Sender: FDA-Public Use
  Company Number: None

PATIENT
  Age: 74 Year
  Sex: Female
  Weight: 67.131 kg

DRUGS (2)
  1. VESICARE [Suspect]
     Indication: BLADDER SPASM
     Route: 002
  2. HYDROCHLOROTHIAZIDE [Concomitant]
     Route: 048

REACTIONS (21)
  - HEADACHE [None]
  - OROPHARYNGEAL SPASM [None]
  - FATIGUE [None]
  - BLOOD UREA INCREASED [None]
  - ANION GAP INCREASED [None]
  - MOTOR DYSFUNCTION [None]
  - DEHYDRATION [None]
  - NAUSEA [None]
  - BLOOD CHLORIDE DECREASED [None]
  - TONGUE SPASM [None]
  - DIZZINESS [None]
  - ARRHYTHMIA [None]
  - BLOOD POTASSIUM DECREASED [None]
  - DYSPNOEA [None]
  - LONG QT SYNDROME [None]
  - CARDIAC FLUTTER [None]
  - BLOOD GLUCOSE INCREASED [None]
  - AGE-RELATED MACULAR DEGENERATION [None]
  - BLOOD MAGNESIUM ABNORMAL [None]
  - TETANY [None]
  - CHEST DISCOMFORT [None]
